FAERS Safety Report 5759158-4 (Version None)
Quarter: 2008Q2

REPORT INFORMATION
  Report Type: 
  Country: None (occurrence: None)
  Receive Date: 20080602
  Receipt Date: 20080521
  Transmission Date: 20081010
  Serious: Yes (Hospitalization)
  Sender: FDA-Public Use
  Company Number: 2008AL005609

PATIENT
  Age: 5 Year
  Sex: Female

DRUGS (5)
  1. PHENYTOIN [Suspect]
     Dosage: 200 MG; BID; PO
     Route: 048
     Dates: start: 20040101
  2. METHOTREXATE [Concomitant]
  3. PIROXICAM [Concomitant]
  4. TRIAMCINOLONE [Concomitant]
  5. IIRON [Concomitant]

REACTIONS (9)
  - DRUG RASH WITH EOSINOPHILIA AND SYSTEMIC SYMPTOMS [None]
  - HEPATOSPLENOMEGALY [None]
  - KAWASAKI'S DISEASE [None]
  - LEUKOCYTOSIS [None]
  - LUNG INFILTRATION [None]
  - NO THERAPEUTIC RESPONSE [None]
  - RESPIRATORY FAILURE [None]
  - THROMBOCYTOPENIA [None]
  - TRANSAMINASES INCREASED [None]
